FAERS Safety Report 17279520 (Version 1)
Quarter: 2020Q1

REPORT INFORMATION
  Report Type: Spontaneous
  Country: US (occurrence: US)
  Receive Date: 20200116
  Receipt Date: 20200116
  Transmission Date: 20200409
  Serious: No
  Sender: FDA-Public Use
  Company Number: US-SA-2020SA007223

PATIENT
  Sex: Female

DRUGS (1)
  1. DULCOLAX LIQUID MINT (MAGNESIUM HYDROXIDE) [Suspect]
     Active Substance: MAGNESIUM HYDROXIDE
     Dosage: TOOK 2 HALF-CUP DOSES OF THE DULCOLAX LIQUID WITH TOTAL OF 60ML OF DULCOLAX LIQUID
     Dates: start: 20200106

REACTIONS (1)
  - Drug ineffective [Unknown]

NARRATIVE: CASE EVENT DATE: 20200106
